FAERS Safety Report 9404733 (Version 1)
Quarter: 2013Q3

REPORT INFORMATION
  Report Type: Spontaneous
  Country: GB (occurrence: None)
  Receive Date: 20130715
  Receipt Date: 20130715
  Transmission Date: 20140515
  Serious: Yes (Hospitalization)
  Sender: FDA-Public Use
  Company Number: 0239850

PATIENT
  Age: 48 Year
  Sex: Male

DRUGS (1)
  1. TACHOSIL [Suspect]

REACTIONS (3)
  - Subdural hygroma [None]
  - Off label use [None]
  - Drug ineffective [None]
